FAERS Safety Report 7605246-7 (Version None)
Quarter: 2011Q3

REPORT INFORMATION
  Report Type: 
  Country: None (occurrence: None)
  Receive Date: 20110705
  Receipt Date: 20110617
  Transmission Date: 20111222
  Serious: Yes (Hospitalization, Other)
  Sender: FDA-Public Use
  Company Number: 2011MA007987

PATIENT
  Age: 71 Year
  Sex: Male

DRUGS (3)
  1. ACETAMINOPHEN [Concomitant]
  2. SIMVASTATIN [Concomitant]
  3. MELOXICAM [Suspect]
     Indication: ARTHRALGIA
     Dosage: 15 MG;QD;PO
     Route: 048
     Dates: start: 20110411, end: 20110509

REACTIONS (5)
  - DUODENITIS [None]
  - MELAENA [None]
  - GASTROINTESTINAL HAEMORRHAGE [None]
  - VOMITING [None]
  - ABDOMINAL PAIN [None]
